FAERS Safety Report 16442423 (Version 1)
Quarter: 2019Q2

REPORT INFORMATION
  Report Type: Spontaneous
  Country: US (occurrence: US)
  Receive Date: 20190617
  Receipt Date: 20190617
  Transmission Date: 20190711
  Serious: Yes (Other)
  Sender: FDA-Public Use
  Company Number: US-SUNOVION-2019SUN002460

PATIENT

DRUGS (3)
  1. LATUDA [Suspect]
     Active Substance: LURASIDONE HYDROCHLORIDE
     Dosage: UNK
     Route: 048
  2. TRINTELLIX [Suspect]
     Active Substance: VORTIOXETINE HYDROBROMIDE
     Dosage: UNK
  3. SEROQUEL [Suspect]
     Active Substance: QUETIAPINE FUMARATE
     Dosage: UNK

REACTIONS (11)
  - Anxiety [Unknown]
  - Feeling abnormal [Unknown]
  - Anger [Unknown]
  - Suicidal ideation [Unknown]
  - Irritability [Unknown]
  - Depression [Unknown]
  - Psychotic disorder [Unknown]
  - Hypersomnia [Unknown]
  - Paranoia [Unknown]
  - Drug tolerance [Unknown]
  - Psychiatric symptom [Unknown]
